FAERS Safety Report 24287572 (Version 4)
Quarter: 2024Q4

REPORT INFORMATION
  Report Type: Report from Study
  Country: US (occurrence: US)
  Receive Date: 20240905
  Receipt Date: 20241122
  Transmission Date: 20250115
  Serious: Yes (Death, Hospitalization, Other)
  Sender: SUNOVION
  Company Number: US-SUNOVION-2024SPA001902

PATIENT

DRUGS (3)
  1. ORGOVYX [Suspect]
     Active Substance: RELUGOLIX
     Indication: Acute myeloid leukaemia
     Dosage: 120 MG, QD
     Route: 048
     Dates: start: 20240214
  2. VENCLEXTA [Concomitant]
     Active Substance: VENETOCLAX
     Indication: Acute myeloid leukaemia
     Dosage: 200 MG, QD
     Route: 065
     Dates: start: 20210609
  3. NUBEQA [Concomitant]
     Active Substance: DAROLUTAMIDE
     Indication: Acute myeloid leukaemia
     Dosage: 600 MG, BID
     Route: 065
     Dates: start: 20231216

REACTIONS (8)
  - Death [Fatal]
  - Hip fracture [Unknown]
  - Fall [Unknown]
  - Nausea [Unknown]
  - Dizziness [Unknown]
  - Product dose omission issue [Unknown]
  - Incorrect dose administered [Unknown]
  - Off label use [Unknown]

NARRATIVE: CASE EVENT DATE: 20241026
